FAERS Safety Report 13457379 (Version 1)
Quarter: 2017Q2

REPORT INFORMATION
  Report Type: Spontaneous
  Country: US (occurrence: US)
  Receive Date: 20170419
  Receipt Date: 20170419
  Transmission Date: 20170830
  Serious: No
  Sender: FDA-Public Use
  Company Number: GXBR2016US002025

PATIENT
  Sex: Male

DRUGS (1)
  1. GLIPIZIDE TABLETS USP [Suspect]
     Active Substance: GLIPIZIDE
     Indication: BLOOD GLUCOSE
     Dosage: 10 MG, UNK
     Route: 048

REACTIONS (1)
  - Blood glucose increased [Unknown]
